FAERS Safety Report 5840656-X (Version None)
Quarter: 2008Q3

REPORT INFORMATION
  Report Type: 
  Country: None (occurrence: None)
  Receive Date: 20080811
  Receipt Date: 20080729
  Transmission Date: 20090109
  Serious: Yes (Hospitalization, Other)
  Sender: FDA-Public Use
  Company Number: PHBS2008JP05251

PATIENT
  Age: 61 Year
  Sex: Male

DRUGS (3)
  1. CYCLOSPORINE [Suspect]
     Indication: RENAL TRANSPLANT
  2. MYCOPHENOLATE MOFETIL [Concomitant]
     Indication: RENAL TRANSPLANT
  3. METHYLPREDNISOLONE [Concomitant]
     Indication: RENAL TRANSPLANT

REACTIONS (13)
  - ARTERIAL DISORDER [None]
  - BLOOD CREATININE INCREASED [None]
  - BLOOD UREA INCREASED [None]
  - BONE MARROW FAILURE [None]
  - CHRONIC ALLOGRAFT NEPHROPATHY [None]
  - COMPLICATIONS OF TRANSPLANTED KIDNEY [None]
  - HAEMODIALYSIS [None]
  - KIDNEY FIBROSIS [None]
  - KIDNEY TRANSPLANT REJECTION [None]
  - LIGHT CHAIN DISEASE [None]
  - PLASMA CELLS INCREASED [None]
  - PROTEINURIA [None]
  - RENAL TUBULAR ATROPHY [None]
